FAERS Safety Report 10161727 (Version 1)
Quarter: 2014Q2

REPORT INFORMATION
  Report Type: Spontaneous
  Country: SE (occurrence: SE)
  Receive Date: 20140509
  Receipt Date: 20140509
  Transmission Date: 20141212
  Serious: Yes (Other)
  Sender: FDA-Public Use
  Company Number: SE-AMGEN INC.-SWESP2014033713

PATIENT
  Age: 67 Year
  Sex: Male

DRUGS (3)
  1. ENBREL [Suspect]
     Indication: RHEUMATOID ARTHRITIS
     Dosage: 50 MG, ONCE A WEEK
     Route: 058
     Dates: start: 200605, end: 201404
  2. AZATHIOPRINE [Concomitant]
     Dosage: UNK UNK, UNK
  3. PREDNISOLONE [Concomitant]
     Dosage: UNK UNK, UNK

REACTIONS (1)
  - Colon cancer metastatic [Unknown]
